FAERS Safety Report 7901828-3 (Version None)
Quarter: 2011Q4

REPORT INFORMATION
  Report Type: 
  Country: None (occurrence: None)
  Receive Date: 20111104
  Receipt Date: 20111022
  Transmission Date: 20120403
  Serious: Yes (Death, Hospitalization)
  Sender: FDA-Public Use
  Company Number: 2011AP002463

PATIENT
  Sex: Female

DRUGS (1)
  1. CARBAMAZEPINE [Suspect]
     Dosage: TRPL

REACTIONS (18)
  - CONGENITAL NAIL DISORDER [None]
  - CONGENITAL ANOMALY [None]
  - HYPERTROPHY [None]
  - FOETAL HEART RATE ABNORMAL [None]
  - FOETAL ANTICONVULSANT SYNDROME [None]
  - MICROGNATHIA [None]
  - RESPIRATORY DISTRESS [None]
  - RESPIRATORY ALKALOSIS [None]
  - AREFLEXIA [None]
  - PULMONARY HYPERTENSION [None]
  - LIMB MALFORMATION [None]
  - MENINGOMYELOCELE [None]
  - NEUTROPENIA [None]
  - SCAPHOCEPHALY [None]
  - CAESAREAN SECTION [None]
  - DYSMORPHISM [None]
  - SPINA BIFIDA [None]
  - FOETAL EXPOSURE DURING PREGNANCY [None]
